FAERS Safety Report 9456593 (Version 2)
Quarter: 2013Q4

REPORT INFORMATION
  Report Type: Spontaneous
  Country: ZA (occurrence: None)
  Receive Date: 20130809
  Receipt Date: 20131115
  Transmission Date: 20140711
  Serious: Yes (Hospitalization)
  Sender: FDA-Public Use
  Company Number: SYM-2013-07901

PATIENT
  Age: 40 Year
  Sex: Male

DRUGS (7)
  1. 5FU [Suspect]
     Indication: COLORECTAL CANCER METASTATIC
     Route: 041
     Dates: start: 20130529, end: 20130529
  2. AFLIBERCEPT (AFLIBERCEPT) (SOLUTION FOR INFUSION) (AFLIBERCEPT) [Suspect]
     Indication: COLORECTAL CANCER METASTATIC
     Route: 041
     Dates: start: 20130529, end: 20130529
  3. IRINOTECAN (IRINOTECAN) (SOLUTION FOR INFUSION) (IRINOTECAN) [Suspect]
     Indication: COLORECTAL CANCER METASTATIC
     Route: 041
     Dates: start: 20130529, end: 20130529
  4. LEUCOVORIN (FOLINIC ACID) (SOLUTION FOR INFUSION) (FOLINIC ACID) [Suspect]
     Indication: COLORECTAL CANCER METASTATIC
     Route: 041
     Dates: start: 20130529, end: 20130529
  5. EMEND (APREPITANT) (APREPITANT) [Concomitant]
  6. MYPAID (IBUPROFEN W/PARACETAMOL0(PARACETAMOL, IBUPROFEN) [Concomitant]
  7. ZOFER (ONDANSETRON HYDROCHLORIDE) (ONDANSETRON HYDROCHLORIDE) [Concomitant]

REACTIONS (3)
  - Vomiting [None]
  - Intestinal obstruction [None]
  - Disease progression [None]
